FAERS Safety Report 5639224-4 (Version None)
Quarter: 2008Q1

REPORT INFORMATION
  Report Type: 
  Country: None (occurrence: None)
  Receive Date: 20080222
  Receipt Date: 20080208
  Transmission Date: 20080703
  Serious: Yes (Death)
  Sender: FDA-Public Use
  Company Number: 2007JP005185

PATIENT
  Age: 4 Year
  Sex: Female
  Weight: 21.5 kg

DRUGS (5)
  1. PROGRAF [Suspect]
     Indication: RENAL AND LIVER TRANSPLANT
     Dosage: 0.015 MG, CONTINUOUS, IV DRIP
     Route: 041
     Dates: start: 20070519, end: 20070628
  2. MEDROL [Suspect]
     Indication: RENAL AND LIVER TRANSPLANT
     Dosage: 7.5 MG, UID/QD, IV NOS
     Route: 042
     Dates: start: 20070518, end: 20070628
  3. CELLCEPT [Suspect]
     Indication: RENAL AND LIVER TRANSPLANT
     Dosage: 170 MG, BID, ORAL
     Route: 048
     Dates: start: 20070516, end: 20070528
  4. BASILIXIMAB (BASILIXIMAB) FORMULATION UNKNOWN [Concomitant]
  5. RITUXAN [Concomitant]

REACTIONS (5)
  - CHOLANGITIS [None]
  - HAEMODIALYSIS [None]
  - MULTI-ORGAN FAILURE [None]
  - SEPSIS [None]
  - TRANSPLANT REJECTION [None]
